FAERS Safety Report 6379482-4 (Version None)
Quarter: 2009Q3

REPORT INFORMATION
  Report Type: 
  Country: None (occurrence: None)
  Receive Date: 20090928
  Receipt Date: 20090924
  Transmission Date: 20100115
  Serious: Yes (Hospitalization)
  Sender: FDA-Public Use
  Company Number: B0595100A

PATIENT
  Sex: Female
  Weight: 105 kg

DRUGS (5)
  1. LAPATINIB [Suspect]
     Indication: BREAST CANCER
     Dosage: 1000MG PER DAY
     Route: 048
     Dates: start: 20081105
  2. TRASTUZUMAB [Suspect]
     Indication: BREAST CANCER
     Route: 042
     Dates: start: 20081105
  3. COVERSYL [Concomitant]
     Indication: HYPERTENSION
     Dosage: 5MG PER DAY
     Route: 048
     Dates: start: 20090106
  4. NOLVADEX [Concomitant]
     Indication: HORMONE THERAPY
     Dosage: 20MG PER DAY
     Route: 048
     Dates: start: 20090106, end: 20090825
  5. UNKNOWN DRUG [Concomitant]
     Indication: HORMONE THERAPY
     Route: 058
     Dates: start: 20090501

REACTIONS (1)
  - CELLULITIS [None]
